FAERS Safety Report 25100651 (Version 2)
Quarter: 2025Q4

REPORT INFORMATION
  Report Type: Report from Study
  Country: EU (occurrence: EU)
  Receive Date: 20250320
  Receipt Date: 20251221
  Transmission Date: 20260117
  Serious: No
  Sender: SANDOZ
  Company Number: EU-SANDOZ-SDZ2025IT017071

PATIENT
  Age: 11 Year
  Sex: Female
  Weight: 37 kg

DRUGS (2)
  1. OMNITROPE [Suspect]
     Active Substance: SOMATROPIN
     Indication: Growth hormone deficiency
     Dosage: 1 MG
  2. OMNITROPE [Suspect]
     Active Substance: SOMATROPIN

REACTIONS (1)
  - Drug dose omission by device [Unknown]

NARRATIVE: CASE EVENT DATE: 20250313
